FAERS Safety Report 5829842-2 (Version None)
Quarter: 2008Q3

REPORT INFORMATION
  Report Type: 
  Country: None (occurrence: None)
  Receive Date: 20080801
  Receipt Date: 20080724
  Transmission Date: 20090109
  Serious: Yes (Hospitalization, Other)
  Sender: FDA-Public Use
  Company Number: FR-NOVOPROD-277906

PATIENT
  Age: 32 Year
  Sex: Female

DRUGS (6)
  1. NORDITROPIN [Suspect]
     Dosage: 1 MG, QD
     Route: 058
     Dates: start: 20060602
  2. LEVOTHYROX [Concomitant]
     Dosage: 50 UG, QD
     Route: 048
     Dates: start: 20040915, end: 20070206
  3. LEVOTHYROX [Concomitant]
     Dosage: 75 UG, QD
     Route: 048
     Dates: start: 20070207
  4. PARACETAMOL COMP. [Concomitant]
     Dosage: 1 INTAKE PM
     Route: 048
  5. TRAMADOL HCL [Concomitant]
     Dosage: 1 INTAKE AT NEEDS
     Route: 048
     Dates: start: 20070314, end: 20070101
  6. ZOMIGORO [Concomitant]
     Dosage: 1 INTAKE
     Dates: start: 20070524

REACTIONS (2)
  - DISEASE RECURRENCE [None]
  - RATHKE'S CLEFT CYST [None]
